FAERS Safety Report 6085120-0 (Version None)
Quarter: 2009Q1

REPORT INFORMATION
  Report Type: 
  Country: None (occurrence: None)
  Receive Date: 20090220
  Receipt Date: 20090212
  Transmission Date: 20090719
  Serious: Yes (Hospitalization)
  Sender: FDA-Public Use
  Company Number: PHHO2008DE13841

PATIENT
  Sex: Male
  Weight: 77.7 kg

DRUGS (4)
  1. MYFORTIC [Suspect]
     Indication: RENAL TRANSPLANT
     Dosage: 1440 MG, DAILY
     Route: 048
     Dates: start: 20080118, end: 20080610
  2. SANDIMMUNE [Suspect]
     Indication: RENAL TRANSPLANT
     Dosage: 150 MG, DAILY
     Route: 048
     Dates: start: 20080118, end: 20080610
  3. NO TREATMENT RECEIVED NOMED [Suspect]
     Indication: RENAL TRANSPLANT
     Dosage: 115 MG, DAILY
     Route: 048
  4. PREDNISOLONE [Concomitant]

REACTIONS (4)
  - URETERIC OPERATION [None]
  - URETERIC STENOSIS [None]
  - URETERONEOCYSTOSTOMY [None]
  - URINARY TRACT INFECTION [None]
